FAERS Safety Report 5279324-4 (Version None)
Quarter: 2007Q1

REPORT INFORMATION
  Report Type: 
  Country: None (occurrence: None)
  Receive Date: 20070328
  Receipt Date: 20060413
  Transmission Date: 20070707
  Serious: No
  Sender: FDA-Public Use
  Company Number: US-AMGEN-US168921

PATIENT
  Sex: Female

DRUGS (5)
  1. NEULASTA [Suspect]
     Indication: CHEMOTHERAPY
     Route: 058
     Dates: start: 20060124, end: 20060207
  2. BLEOMYCIN [Concomitant]
     Route: 065
     Dates: start: 20060109, end: 20060306
  3. ADRIAMYCIN PFS [Concomitant]
     Route: 065
     Dates: start: 20060109, end: 20060306
  4. VINBLASTINE SULFATE [Concomitant]
     Route: 065
     Dates: start: 20060109, end: 20060306
  5. DACARBAZINE [Concomitant]
     Route: 065
     Dates: start: 20060109, end: 20060306

REACTIONS (2)
  - PRURITUS [None]
  - RASH MACULO-PAPULAR [None]
